FAERS Safety Report 7681531-8 (Version None)
Quarter: 2011Q3

REPORT INFORMATION
  Report Type: 
  Country: None (occurrence: None)
  Receive Date: 20110812
  Receipt Date: 20110809
  Transmission Date: 20111222
  Serious: Yes (Death)
  Sender: FDA-Public Use
  Company Number: PHHY2011JP72122

PATIENT
  Age: 82 Year
  Sex: Male

DRUGS (1)
  1. EXELON [Suspect]
     Indication: DEMENTIA ALZHEIMER'S TYPE
     Dosage: 1 DF, DAILY
     Route: 062
     Dates: start: 20110720, end: 20110721

REACTIONS (1)
  - PNEUMONIA ASPIRATION [None]
